FAERS Safety Report 23700382 (Version 3)
Quarter: 2024Q2

REPORT INFORMATION
  Report Type: Report from Study
  Country: US (occurrence: US)
  Receive Date: 20240403
  Receipt Date: 20240629
  Transmission Date: 20240715
  Serious: Yes (Other)
  Sender: FDA-Public Use
  Company Number: US-ABBVIE-5700914

PATIENT
  Sex: Male
  Weight: 88 kg

DRUGS (2)
  1. SKYRIZI [Suspect]
     Active Substance: RISANKIZUMAB-RZAA
     Indication: Psoriasis
     Route: 058
     Dates: start: 20230213
  2. SKYRIZI [Suspect]
     Active Substance: RISANKIZUMAB-RZAA
     Dosage: DOSAGE: 150 MG/ML END DATE FEB 2023
     Route: 058
     Dates: start: 20230204

REACTIONS (9)
  - Neck surgery [Unknown]
  - Arthritis [Not Recovered/Not Resolved]
  - Neck pain [Unknown]
  - Arthralgia [Unknown]
  - Unevaluable event [Unknown]
  - Hypoaesthesia [Unknown]
  - Paraesthesia [Unknown]
  - Psoriasis [Unknown]
  - Pain in extremity [Not Recovered/Not Resolved]
